FAERS Safety Report 18032008 (Version 1)
Quarter: 2020Q3

REPORT INFORMATION
  Report Type: Spontaneous
  Country: US (occurrence: US)
  Receive Date: 20200716
  Receipt Date: 20200716
  Transmission Date: 20201103
  Serious: Yes (Other)
  Sender: FDA-Public Use
  Company Number: None

PATIENT
  Age: 76 Year
  Sex: Female
  Weight: 81.45 kg

DRUGS (1)
  1. EVENITY [Suspect]
     Active Substance: ROMOSOZUMAB-AQQG
     Indication: OSTEOPOROSIS
     Dosage: ?          OTHER FREQUENCY:ONCE MONTHLY;?
     Route: 058
     Dates: start: 20200217, end: 20200714

REACTIONS (3)
  - Injection site pruritus [None]
  - Nodule [None]
  - Rash papular [None]

NARRATIVE: CASE EVENT DATE: 20200715
